FAERS Safety Report 7511837-4 (Version None)
Quarter: 2011Q2

REPORT INFORMATION
  Report Type: 
  Country: None (occurrence: None)
  Receive Date: 20110531
  Receipt Date: 20110524
  Transmission Date: 20111010
  Serious: Yes (Other)
  Sender: FDA-Public Use
  Company Number: BR-PFIZER INC-2011111817

PATIENT
  Age: 57 Year
  Sex: Male
  Weight: 79 kg

DRUGS (1)
  1. CARDURA [Suspect]
     Indication: PROSTATIC DISORDER
     Dosage: 4 MG, 1X/DAY
     Route: 048
     Dates: start: 20110512, end: 20110520

REACTIONS (8)
  - ABNORMAL FAECES [None]
  - DIZZINESS [None]
  - HEADACHE [None]
  - OROPHARYNGEAL PAIN [None]
  - HAEMATOCHEZIA [None]
  - DIARRHOEA [None]
  - DIZZINESS POSTURAL [None]
  - ASTHENIA [None]
